FAERS Safety Report 21706269 (Version 1)
Quarter: 2022Q4

REPORT INFORMATION
  Report Type: Spontaneous
  Country: US (occurrence: None)
  Receive Date: 20221208
  Receipt Date: 20221208
  Transmission Date: 20230112
  Serious: Yes (Disabling)
  Sender: FDA-Public Use
  Company Number: None

PATIENT
  Age: 53 Year
  Sex: Female

DRUGS (9)
  1. METHYLPHENIDATE [Suspect]
     Active Substance: METHYLPHENIDATE
     Indication: Attention deficit hyperactivity disorder
     Dosage: OTHER QUANTITY : 1.5 TABLET(S);?FREQUENCY : TWICE A DAY;?
     Route: 048
     Dates: start: 20220120
  2. Wellbutrin 150mg XL (1) [Concomitant]
  3. Duloxetine 60mg (1) [Concomitant]
  4. Methylphenidate 20mg (2x) [Concomitant]
  5. Hydroxzine Pamoate 100mg (1) [Concomitant]
  6. Amitriptyline 100mg (1) [Concomitant]
  7. Lamotrigine 100mg (1) [Concomitant]
  8. Propranolol:  80mg (1) [Concomitant]
  9. IBUPROFEN [Concomitant]
     Active Substance: IBUPROFEN

REACTIONS (4)
  - Drug tolerance [None]
  - Therapeutic product effect decreased [None]
  - Product substitution issue [None]
  - Product quality issue [None]

NARRATIVE: CASE EVENT DATE: 20220120
